FAERS Safety Report 8573655-8 (Version None)
Quarter: 2012Q3

REPORT INFORMATION
  Report Type: 
  Country: None (occurrence: None)
  Receive Date: 20120806
  Receipt Date: 20120724
  Transmission Date: 20120928
  Serious: Yes (Hospitalization, Other)
  Sender: FDA-Public Use
  Company Number: US-SHIRE-ALL1-2012-03610

PATIENT
  Sex: Female

DRUGS (2)
  1. ADDERALL XR 10 [Suspect]
     Dosage: UNK, UNKNOWN
     Route: 065
  2. ADDERALL XR 10 [Suspect]
     Indication: FATIGUE
     Dosage: UNK, UNKNOWN
     Route: 065

REACTIONS (7)
  - ABNORMAL BEHAVIOUR [None]
  - FAMILY STRESS [None]
  - DRUG ABUSE [None]
  - BIPOLAR DISORDER [None]
  - OFF LABEL USE [None]
  - HOMICIDAL IDEATION [None]
  - DRUG DISPENSING ERROR [None]
